FAERS Safety Report 15980112 (Version 1)
Quarter: 2019Q1

REPORT INFORMATION
  Report Type: Spontaneous
  Country: US (occurrence: US)
  Receive Date: 20190219
  Receipt Date: 20190219
  Transmission Date: 20190418
  Serious: No
  Sender: FDA-Public Use
  Company Number: PHHY2019US039006

PATIENT
  Sex: Male
  Weight: 59.41 kg

DRUGS (1)
  1. ENTRESTO [Suspect]
     Active Substance: SACUBITRIL\VALSARTAN
     Indication: CARDIAC FAILURE
     Dosage: 24 MG/KG, BID
     Route: 048
     Dates: start: 20160923

REACTIONS (1)
  - Orthostatic hypotension [Not Recovered/Not Resolved]
